FAERS Safety Report 16201735 (Version 1)
Quarter: 2019Q2

REPORT INFORMATION
  Report Type: Spontaneous
  Country: US (occurrence: US)
  Receive Date: 20190415
  Receipt Date: 20190415
  Transmission Date: 20190711
  Serious: Yes (Hospitalization)
  Sender: FDA-Public Use
  Company Number: None

PATIENT
  Age: 69 Year
  Sex: Male

DRUGS (3)
  1. LANTUS SOLOSTAR INJ 100/ML [Concomitant]
     Dates: start: 20180315
  2. NOVOLOG INJ FLEXPEN [Concomitant]
     Dates: start: 20180621
  3. REPATHA [Suspect]
     Active Substance: EVOLOCUMAB
     Indication: TYPE V HYPERLIPIDAEMIA
     Dosage: ?          OTHER FREQUENCY:EVERY 2 WEEKS;?
     Route: 058

REACTIONS (3)
  - Blood glucose fluctuation [None]
  - Pulmonary mass [None]
  - Pain [None]

NARRATIVE: CASE EVENT DATE: 20190411
